FAERS Safety Report 17189519 (Version 1)
Quarter: 2019Q4

REPORT INFORMATION
  Report Type: Spontaneous
  Country: CA (occurrence: CA)
  Receive Date: 20191223
  Receipt Date: 20191223
  Transmission Date: 20200122
  Serious: Yes (Hospitalization)
  Sender: FDA-Public Use
  Company Number: CA-TEVA-2019-CA-1154868

PATIENT
  Age: 87 Year
  Sex: Female

DRUGS (14)
  1. PEG 3350 [Concomitant]
     Active Substance: POLYETHYLENE GLYCOL 3350
  2. VITAMIN B12 [Concomitant]
     Active Substance: CYANOCOBALAMIN
  3. LAMOTRIGINE. [Suspect]
     Active Substance: LAMOTRIGINE
     Indication: SEIZURE
     Dosage: 100 MILLIGRAM DAILY;
     Route: 048
  4. CALCIUM CARBONATE. [Concomitant]
     Active Substance: CALCIUM CARBONATE
  5. ACETAMINOPHEN. [Concomitant]
     Active Substance: ACETAMINOPHEN
  6. ATORVASTATIN [Concomitant]
     Active Substance: ATORVASTATIN
  7. CHOLECALCIFEROL [Concomitant]
     Active Substance: CHOLECALCIFEROL
  8. LEVOTHYROXINE. [Concomitant]
     Active Substance: LEVOTHYROXINE
  9. HYDROMORPHONE [Concomitant]
     Active Substance: HYDROMORPHONE
  10. SENOKOT [Concomitant]
     Active Substance: SENNOSIDES
  11. VENLAFAXINE HYDROCHLORIDE. [Concomitant]
     Active Substance: VENLAFAXINE HYDROCHLORIDE
  12. ALENDRONATE [Concomitant]
     Active Substance: ALENDRONATE SODIUM
  13. ENTERIC COATED A.S.A [Concomitant]
  14. GABAPENTIN. [Concomitant]
     Active Substance: GABAPENTIN

REACTIONS (14)
  - Tongue ulceration [Recovering/Resolving]
  - White blood cell count abnormal [Recovering/Resolving]
  - Haemoglobin decreased [Recovering/Resolving]
  - Pain [Recovering/Resolving]
  - Oropharyngeal pain [Recovering/Resolving]
  - Rash macular [Recovering/Resolving]
  - Oral pain [Recovering/Resolving]
  - Oral mucosal blistering [Recovering/Resolving]
  - Lip ulceration [Recovering/Resolving]
  - Neutrophil count abnormal [Recovering/Resolving]
  - Rash [Recovering/Resolving]
  - Rash papular [Recovering/Resolving]
  - Skin warm [Recovering/Resolving]
  - Pruritus [Recovering/Resolving]
